FAERS Safety Report 18437470 (Version 2)
Quarter: 2022Q2

REPORT INFORMATION
  Report Type: Spontaneous
  Country: TR (occurrence: TR)
  Receive Date: 20201028
  Receipt Date: 20220513
  Transmission Date: 20220721
  Serious: Yes (Hospitalization, Other)
  Sender: FDA-Public Use
  Company Number: TR-SA-2020SA296944

PATIENT
  Age: 52 Year
  Sex: Female

DRUGS (1)
  1. ALEMTUZUMAB [Suspect]
     Active Substance: ALEMTUZUMAB
     Indication: Relapsing-remitting multiple sclerosis
     Dosage: SECOND COURSE
     Dates: start: 2019

REACTIONS (10)
  - Loss of consciousness [Unknown]
  - Hemiplegia [Unknown]
  - Unresponsive to stimuli [Unknown]
  - Quadriplegia [Unknown]
  - Cerebral haemorrhage [Unknown]
  - Headache [Unknown]
  - Putamen haemorrhage [Unknown]
  - Intraventricular haemorrhage [Unknown]
  - Cerebral haematoma [Unknown]
  - Hypertension [Recovering/Resolving]

NARRATIVE: CASE EVENT DATE: 20190101
